FAERS Safety Report 19866231 (Version 1)
Quarter: 2021Q3

REPORT INFORMATION
  Report Type: Report from Study
  Country: IN (occurrence: IN)
  Receive Date: 20210922
  Receipt Date: 20210922
  Transmission Date: 20211014
  Serious: Yes (Hospitalization)
  Sender: FDA-Public Use
  Company Number: NVSC2021IN140161

PATIENT
  Age: 31 Year
  Sex: Female

DRUGS (1)
  1. VYMADA [Suspect]
     Active Substance: SACUBITRIL\VALSARTAN
     Indication: CARDIAC FAILURE CONGESTIVE
     Dosage: 100 MG, BID (1 AND 1/2 BID)
     Route: 048
     Dates: start: 20210614

REACTIONS (3)
  - Wrong technique in product usage process [Unknown]
  - Abdominal pain [Recovered/Resolved]
  - Uterine cyst [Recovered/Resolved]

NARRATIVE: CASE EVENT DATE: 20210614
